FAERS Safety Report 10794773 (Version 3)
Quarter: 2015Q2

REPORT INFORMATION
  Report Type: Spontaneous
  Country: US (occurrence: US)
  Receive Date: 20150213
  Receipt Date: 20150519
  Transmission Date: 20150821
  Serious: No
  Sender: FDA-Public Use
  Company Number: US-GLAXOSMITHKLINE-US2015GSK005012

PATIENT
  Sex: Male

DRUGS (4)
  1. VOTRIENT [Suspect]
     Active Substance: PAZOPANIB HYDROCHLORIDE
     Indication: RENAL CANCER METASTATIC
     Dosage: 200 MG, U
     Route: 065
     Dates: start: 20141212
  2. PREDNISONE. [Concomitant]
     Active Substance: PREDNISONE
  3. VOTRIENT [Suspect]
     Active Substance: PAZOPANIB HYDROCHLORIDE
     Dosage: UNK
  4. VOTRIENT [Suspect]
     Active Substance: PAZOPANIB HYDROCHLORIDE
     Indication: RENAL CELL CARCINOMA
     Dosage: UNK, U
     Route: 065

REACTIONS (6)
  - Diarrhoea [Unknown]
  - Myalgia [Unknown]
  - Pyrexia [Unknown]
  - Ageusia [Unknown]
  - Asthenia [Unknown]
  - Bronchitis [Unknown]
